FAERS Safety Report 9580560 (Version 1)
Quarter: 2013Q4

REPORT INFORMATION
  Report Type: Spontaneous
  Country: US (occurrence: US)
  Receive Date: 20131002
  Receipt Date: 20131002
  Transmission Date: 20140711
  Serious: Yes (Other)
  Sender: FDA-Public Use
  Company Number: US-TEVA-434845USA

PATIENT
  Age: 70 Year
  Sex: Female
  Weight: 61.74 kg

DRUGS (2)
  1. AZILECT [Suspect]
     Indication: PARKINSON^S DISEASE
  2. CARBIDOPA/LEVODOPA [Concomitant]

REACTIONS (1)
  - Bladder cancer [Unknown]
